FAERS Safety Report 4302489-5 (Version None)
Quarter: 2004Q1

REPORT INFORMATION
  Report Type: 
  Country: None (occurrence: None)
  Receive Date: 20040218
  Receipt Date: 20030807
  Transmission Date: 20041129
  Serious: Yes (Other)
  Sender: FDA-Public Use
  Company Number: PHEH2003US06519

PATIENT
  Age: 72 Year
  Sex: Female

DRUGS (8)
  1. DIOVAN [Suspect]
     Dosage: 80 MG, QD, ORAL
     Route: 048
     Dates: start: 20010201, end: 20020601
  2. POTASSIUM (POTASSIUM) [Suspect]
     Dosage: QOD
  3. FLOVENT [Concomitant]
  4. LIPITOR [Concomitant]
  5. AVANDIA [Concomitant]
  6. PRILOSEC [Concomitant]
  7. LEVOTHYROXINE SODIUM [Concomitant]
  8. ZANTAC [Concomitant]

REACTIONS (1)
  - BLOOD POTASSIUM INCREASED [None]
